FAERS Safety Report 10904381 (Version 1)
Quarter: 2015Q1

REPORT INFORMATION
  Report Type: Spontaneous
  Country: US (occurrence: US)
  Receive Date: 20150311
  Receipt Date: 20150311
  Transmission Date: 20150721
  Serious: Yes (Death, Hospitalization)
  Sender: FDA-Public Use
  Company Number: US-BAXTER-2015BAX008169

PATIENT
  Sex: Male

DRUGS (1)
  1. DIANEAL LOW CALCIUM PERITONEAL DIALYSIS SOLUTION WITH DEXTROSE [Suspect]
     Active Substance: CALCIUM CHLORIDE\DEXTROSE\MAGNESIUM CHLORIDE\SODIUM CHLORIDE\SODIUM LACTATE
     Indication: PERITONEAL DIALYSIS
     Route: 033

REACTIONS (7)
  - Withdrawal of life support [Fatal]
  - Asthenia [Unknown]
  - Cough [Unknown]
  - Peritonitis [Not Recovered/Not Resolved]
  - Chest pain [Unknown]
  - Sepsis [Fatal]
  - Abdominal distension [Unknown]

NARRATIVE: CASE EVENT DATE: 201411
